FAERS Safety Report 16625981 (Version 1)
Quarter: 2019Q3

REPORT INFORMATION
  Report Type: Spontaneous
  Country: IE (occurrence: IE)
  Receive Date: 20190724
  Receipt Date: 20190724
  Transmission Date: 20191004
  Serious: Yes (Other)
  Sender: FDA-Public Use
  Company Number: IE-TEVA-2019-IE-1081750

PATIENT
  Age: 45 Year
  Sex: Female

DRUGS (2)
  1. DOXYCYCLINE TEVA 100MG HARD CAPSULES [Suspect]
     Active Substance: DOXYCYCLINE
     Indication: SKIN DISORDER
     Dosage: 200MG DAILY X6/52, THEN 100MG DAILY X3/12 (INTENDED DOSE)
     Route: 048
     Dates: start: 20190608, end: 20190617
  2. ELTROXIN 25 MICROGRAM TABLETS [Concomitant]
     Indication: HYPOTHYROIDISM
     Dosage: 75MCG MON - FRI?100MCG SAT + SUN
     Route: 065

REACTIONS (6)
  - Paraesthesia [Recovered/Resolved]
  - Asthenia [Recovered/Resolved]
  - Lethargy [Recovered/Resolved]
  - Burning sensation [Recovered/Resolved]
  - Photosensitivity reaction [Recovered/Resolved]
  - Nausea [Recovered/Resolved]

NARRATIVE: CASE EVENT DATE: 20190609
